FAERS Safety Report 5056218-0 (Version None)
Quarter: 2006Q3

REPORT INFORMATION
  Report Type: 
  Country: None (occurrence: None)
  Receive Date: 20060717
  Receipt Date: 20060130
  Transmission Date: 20061208
  Serious: Yes (Other)
  Sender: FDA-Public Use
  Company Number: 2006-US-00590

PATIENT
  Age: 21 Day

DRUGS (1)
  1. PROGLYCEM CAPSULES (DIAZOXIDE) [Suspect]
     Indication: HYPERINSULINISM
     Dosage: 10 MG/KG QD; ORAL
     Route: 048
     Dates: start: 20060115, end: 20060119

REACTIONS (1)
  - PULMONARY HAEMORRHAGE [None]
